FAERS Safety Report 8104151-X (Version None)
Quarter: 2012Q1

REPORT INFORMATION
  Report Type: 
  Country: None (occurrence: None)
  Receive Date: 20120201
  Receipt Date: 20120127
  Transmission Date: 20120608
  Serious: Yes (Death)
  Sender: FDA-Public Use
  Company Number: JP-BRISTOL-MYERS SQUIBB COMPANY-16372567

PATIENT
  Age: 71 Year
  Sex: Male

DRUGS (3)
  1. ORENCIA [Suspect]
     Indication: RHEUMATOID ARTHRITIS
     Dosage: 2ND ADMINISTRATION
     Route: 041
     Dates: start: 20111128, end: 20111212
  2. PREDNISOLONE [Suspect]
     Dosage: INTIALLY 10MG REDUCED TO 7MG
     Route: 048
  3. RHEUMATREX [Concomitant]
     Route: 048

REACTIONS (1)
  - ACUTE MYOCARDIAL INFARCTION [None]
